FAERS Safety Report 7324119-0 (Version None)
Quarter: 2011Q1

REPORT INFORMATION
  Report Type: 
  Country: None (occurrence: None)
  Receive Date: 20110201
  Receipt Date: 20100507
  Transmission Date: 20110831
  Serious: Yes (Other)
  Sender: FDA-Public Use
  Company Number: WAES 1005USA00884

PATIENT
  Age: 11 Year
  Sex: Female

DRUGS (4)
  1. AMIKACIN [Concomitant]
  2. PRIMAXIN [Suspect]
  3. PRIMAXIN [Suspect]
     Indication: PNEUMONIA
     Dosage: 500 MG/Q6H/IV, 250 MG/Q6H/IV
     Route: 042
     Dates: start: 20100322
  4. PRIMAXIN [Suspect]
     Indication: PNEUMONIA
     Dosage: 500 MG/Q6H/IV, 250 MG/Q6H/IV
     Route: 042
     Dates: start: 20100322

REACTIONS (1)
  - DEAFNESS [None]
